FAERS Safety Report 18823061 (Version 3)
Quarter: 2021Q2

REPORT INFORMATION
  Report Type: Report from Study
  Country: NO (occurrence: NO)
  Receive Date: 20210202
  Receipt Date: 20210423
  Transmission Date: 20210717
  Serious: Yes (Hospitalization)
  Sender: FDA-Public Use
  Company Number: NO-BRISTOL-MYERS SQUIBB COMPANY-BMS-2021-007971

PATIENT
  Age: 68 Year
  Sex: Male

DRUGS (4)
  1. NIVOLUMAB [Suspect]
     Active Substance: NIVOLUMAB
     Indication: MESOTHELIOMA MALIGNANT
     Dosage: UNK
     Route: 065
  2. GM?CSF [Suspect]
     Active Substance: GRANULOCYTE-MACROPHAGE COLONY-STIMULATING FACTOR
     Indication: MESOTHELIOMA MALIGNANT
     Route: 065
  3. IPILIMUMAB [Suspect]
     Active Substance: IPILIMUMAB
     Indication: MESOTHELIOMA MALIGNANT
     Route: 065
  4. UV1 [Suspect]
     Active Substance: INVESTIGATIONAL PRODUCT
     Indication: MESOTHELIOMA MALIGNANT
     Route: 065

REACTIONS (3)
  - Condition aggravated [Unknown]
  - Atelectasis [Unknown]
  - Pleural effusion [Unknown]

NARRATIVE: CASE EVENT DATE: 20210123
